FAERS Safety Report 8784932 (Version 2)
Quarter: 2012Q4

REPORT INFORMATION
  Report Type: 
  Country: US (occurrence: US)
  Receive Date: 20120914
  Receipt Date: 20121231
  Transmission Date: 20130627
  Serious: No
  Sender: FDA-Public Use
  Company Number: US-009507513-1209USA002352

PATIENT
  Age: 67 None
  Sex: Male

DRUGS (3)
  1. VICTRELIS [Suspect]
     Indication: HEPATITIS C
     Dosage: 800 mg, tid
     Route: 048
     Dates: start: 20120409, end: 2012
  2. PEGASYS [Suspect]
  3. RIBASPHERE [Suspect]

REACTIONS (3)
  - Treatment failure [Unknown]
  - Anaemia [Not Recovered/Not Resolved]
  - Neutropenia [Not Recovered/Not Resolved]
